FAERS Safety Report 21826102 (Version 1)
Quarter: 2023Q1

REPORT INFORMATION
  Report Type: Spontaneous
  Country: None (occurrence: US)
  Receive Date: 20230106
  Receipt Date: 20230106
  Transmission Date: 20230417
  Serious: No
  Sender: FDA-Public Use
  Company Number: US-Ajanta Pharma USA Inc.-2136475

PATIENT
  Age: 78 Year
  Sex: Female

DRUGS (1)
  1. CHOLESTYRAMINE [Suspect]
     Active Substance: CHOLESTYRAMINE
     Indication: Bile acid malabsorption
     Route: 048
     Dates: start: 20221123

REACTIONS (9)
  - Foreign body in mouth [Not Recovered/Not Resolved]
  - Foreign body in throat [Not Recovered/Not Resolved]
  - Diarrhoea [Not Recovered/Not Resolved]
  - Drug ineffective for unapproved indication [Not Recovered/Not Resolved]
  - Product solubility abnormal [Not Recovered/Not Resolved]
  - Product substitution issue [Not Recovered/Not Resolved]
  - Product dose omission issue [Recovered/Resolved]
  - Product physical consistency issue [Not Recovered/Not Resolved]
  - Product deposit [Not Recovered/Not Resolved]

NARRATIVE: CASE EVENT DATE: 20221101
